FAERS Safety Report 24140841 (Version 2)
Quarter: 2024Q3

REPORT INFORMATION
  Report Type: Spontaneous
  Country: SA (occurrence: SA)
  Receive Date: 20240726
  Receipt Date: 20240809
  Transmission Date: 20241017
  Serious: Yes (Other)
  Sender: AVERITAS
  Company Number: SA-GRUNENTHAL-2024-123141

PATIENT
  Age: 46 Year
  Sex: Male

DRUGS (1)
  1. QUTENZA [Suspect]
     Active Substance: CAPSAICIN
     Indication: Diabetic neuropathy
     Dosage: 1 DOSAGE FORM, ONCE
     Route: 003
     Dates: start: 20240716, end: 20240716

REACTIONS (2)
  - Application site pain [Recovered/Resolved]
  - Application site exfoliation [Unknown]

NARRATIVE: CASE EVENT DATE: 20240716
